FAERS Safety Report 25863651 (Version 1)
Quarter: 2025Q3

REPORT INFORMATION
  Report Type: Spontaneous
  Country: US (occurrence: None)
  Receive Date: 20250929
  Receipt Date: 20250929
  Transmission Date: 20251021
  Serious: Yes (Other)
  Sender: FDA-CTU
  Company Number: None

PATIENT
  Age: 56 Year
  Sex: Female
  Weight: 93.4 kg

DRUGS (3)
  1. BIVIGAM [Suspect]
     Active Substance: HUMAN IMMUNOGLOBULIN G
     Indication: Multifocal motor neuropathy
     Route: 041
     Dates: start: 20250905, end: 20250906
  2. Diphenhydramine 50mg PO [Concomitant]
     Dates: start: 20250905, end: 20250906
  3. Tylenol 650mg po [Concomitant]
     Dates: start: 20250905, end: 20250906

REACTIONS (3)
  - Erythema [None]
  - Rash [None]
  - Infusion related reaction [None]

NARRATIVE: CASE EVENT DATE: 20250905
